FAERS Safety Report 13659593 (Version 1)
Quarter: 2017Q2

REPORT INFORMATION
  Report Type: Spontaneous
  Country: US (occurrence: US)
  Receive Date: 20170616
  Receipt Date: 20170616
  Transmission Date: 20170830
  Serious: Yes (Hospitalization)
  Sender: FDA-Public Use
  Company Number: None

PATIENT
  Age: 62 Year
  Sex: Female
  Weight: 101.1 kg

DRUGS (12)
  1. HYDROMORPHONE 0.2 MG [Suspect]
     Active Substance: HYDROMORPHONE HYDROCHLORIDE
     Indication: PROCEDURAL PAIN
     Dosage: RECENT 100MG 3 50MCG DOSES IV?
     Route: 042
  2. LACTATED RINGERS [Concomitant]
     Active Substance: CALCIUM CHLORIDE\POTASSIUM CHLORIDE\SODIUM CHLORIDE\SODIUM LACTATE
  3. METFORMIN [Concomitant]
     Active Substance: METFORMIN HYDROCHLORIDE
  4. OXYCODONE 12HR AND OXYCODONE IM [Suspect]
     Active Substance: OXYCODONE
  5. APAP [Concomitant]
     Active Substance: ACETAMINOPHEN
  6. LIDOCAINE. [Concomitant]
     Active Substance: LIDOCAINE
  7. REQUIP [Concomitant]
     Active Substance: ROPINIROLE HYDROCHLORIDE
  8. DEXMEDETOMI [Concomitant]
  9. HYDROMORPHONE [Suspect]
     Active Substance: HYDROMORPHONE
     Indication: PROCEDURAL PAIN
     Dosage: RECENT 10MG/50ML CONTINUOUS PCA?
  10. COLACE [Concomitant]
     Active Substance: DOCUSATE SODIUM
  11. VANCOMYCIN [Concomitant]
     Active Substance: VANCOMYCIN
  12. BACITRACIN. [Concomitant]
     Active Substance: BACITRACIN

REACTIONS (4)
  - Somnolence [None]
  - Depressed level of consciousness [None]
  - Sedation [None]
  - Respiratory failure [None]

NARRATIVE: CASE EVENT DATE: 20170203
